FAERS Safety Report 13061703 (Version 3)
Quarter: 2018Q4

REPORT INFORMATION
  Report Type: Spontaneous
  Country: US (occurrence: US)
  Receive Date: 20161226
  Receipt Date: 20181217
  Transmission Date: 20190204
  Serious: No
  Sender: FDA-Public Use
  Company Number: US-NOVEN PHARMACEUTICALS, INC.-US2016002455

PATIENT

DRUGS (3)
  1. MINIVELLE [Suspect]
     Active Substance: ESTRADIOL
     Indication: HOT FLUSH
     Dosage: 0.1 MG, 3-4 DAYS
     Route: 062
     Dates: start: 201505
  2. MINIVELLE [Suspect]
     Active Substance: ESTRADIOL
     Dosage: UNK, 3-4 DAYS
     Route: 062
  3. MINIVELLE [Suspect]
     Active Substance: ESTRADIOL
     Indication: NIGHT SWEATS
     Dosage: 0.1 MG, 3-4 DAYS
     Route: 062

REACTIONS (14)
  - Product quality issue [Unknown]
  - Off label use [Recovered/Resolved]
  - Drug effect delayed [Not Recovered/Not Resolved]
  - Hot flush [Not Recovered/Not Resolved]
  - Migraine [Recovered/Resolved]
  - Impaired quality of life [Unknown]
  - Therapy cessation [Recovered/Resolved]
  - Asthenia [Recovered/Resolved]
  - Blood oestrogen decreased [Recovered/Resolved]
  - Alopecia [Unknown]
  - Fatigue [Recovered/Resolved]
  - Product adhesion issue [Unknown]
  - Wrong technique in product usage process [Unknown]
  - Overdose [Unknown]

NARRATIVE: CASE EVENT DATE: 2016
